FAERS Safety Report 4302614-6 (Version None)
Quarter: 2004Q1

REPORT INFORMATION
  Report Type: 
  Country: None (occurrence: None)
  Receive Date: 20040220
  Receipt Date: 20040206
  Transmission Date: 20041129
  Serious: Yes (Other)
  Sender: FDA-Public Use
  Company Number: 2004008479

PATIENT
  Age: 56 Year
  Sex: Female

DRUGS (5)
  1. LIPITOR [Suspect]
     Indication: BLOOD CHOLESTEROL INCREASED
     Dosage: 20 MG (DAILY), ORAL
     Route: 048
  2. DONEPEZIL HCL [Concomitant]
  3. PAROXETINE HCL [Concomitant]
  4. ALPRAZOLAM [Concomitant]
  5. MULTIVITAMIN [Concomitant]

REACTIONS (9)
  - BEREAVEMENT REACTION [None]
  - CHOLECYSTECTOMY [None]
  - ERUCTATION [None]
  - FEELING ABNORMAL [None]
  - GASTROENTERITIS VIRAL [None]
  - HEPATIC ENZYME INCREASED [None]
  - HIATUS HERNIA [None]
  - VOMITING [None]
  - WEIGHT INCREASED [None]
